FAERS Safety Report 4309746-7 (Version None)
Quarter: 2004Q1

REPORT INFORMATION
  Report Type: 
  Country: None (occurrence: None)
  Receive Date: 20040301
  Receipt Date: 20040213
  Transmission Date: 20041129
  Serious: Yes (Other)
  Sender: FDA-Public Use
  Company Number: US-JNJFOC-20040204601

PATIENT
  Age: 75 Year
  Sex: Female

DRUGS (1)
  1. DOXIL [Suspect]
     Indication: OVARIAN CANCER
     Dosage: 30 MG/M2, 1 IN 3 WEEK, INTRAVENOUS
     Route: 042

REACTIONS (1)
  - DEMENTIA [None]
